FAERS Safety Report 4607815-5 (Version None)
Quarter: 2005Q1

REPORT INFORMATION
  Report Type: 
  Country: None (occurrence: None)
  Receive Date: 20050310
  Receipt Date: 20040630
  Transmission Date: 20050727
  Serious: Yes (Other)
  Sender: FDA-Public Use
  Company Number: HQWYE869702JUL04

PATIENT
  Age: 57 Year
  Sex: Male

DRUGS (5)
  1. RAPAMUNE [Suspect]
     Indication: PROPHYLAXIS AGAINST TRANSPLANT REJECTION
  2. CYCLOSPORINE [Concomitant]
  3. MYCOPHENOLATE MOFETIL [Concomitant]
  4. PREDNISOLONE [Concomitant]
  5. ANTITHYMOCYTE IMMUNOGLOBULIN [Concomitant]

REACTIONS (3)
  - GLOMERULONEPHRITIS MEMBRANOUS [None]
  - KIDNEY TRANSPLANT REJECTION [None]
  - NEPHROTIC SYNDROME [None]
